FAERS Safety Report 18328821 (Version 1)
Quarter: 2020Q3

REPORT INFORMATION
  Report Type: Spontaneous
  Country: AU (occurrence: AU)
  Receive Date: 20200929
  Receipt Date: 20200929
  Transmission Date: 20201103
  Serious: Yes (Hospitalization)
  Sender: FDA-Public Use
  Company Number: None

PATIENT
  Sex: Female

DRUGS (25)
  1. FORTEO [Suspect]
     Active Substance: TERIPARATIDE
     Indication: OSTEOPOROSIS
     Route: 058
  2. DOXYCYCL HYC 100 MG GENERIC FOR VIBRA TAB 100 MG [Concomitant]
     Active Substance: DOXYCYCLINE HYCLATE
  3. FLUCONAZOLE. [Concomitant]
     Active Substance: FLUCONAZOLE
  4. TRAZODONE [Concomitant]
     Active Substance: TRAZODONE HYDROCHLORIDE
  5. PIMECROLIMUS. [Concomitant]
     Active Substance: PIMECROLIMUS
  6. TRIAMCINOLON CREAM [Concomitant]
  7. FENTANYL. [Concomitant]
     Active Substance: FENTANYL
  8. VITAMIN D3 [Concomitant]
     Active Substance: CHOLECALCIFEROL
  9. CEPHALEXIN. [Concomitant]
     Active Substance: CEPHALEXIN
  10. VALACYCLOVIR [Concomitant]
     Active Substance: VALACYCLOVIR HYDROCHLORIDE
  11. FUROSEMIDE. [Concomitant]
     Active Substance: FUROSEMIDE
  12. HYDRAIAZINE [Concomitant]
  13. RISPERIDONE. [Concomitant]
     Active Substance: RISPERIDONE
  14. FOLICACID [Concomitant]
  15. LISINOPRIL. [Concomitant]
     Active Substance: LISINOPRIL
  16. CARISOPRODOL. [Concomitant]
     Active Substance: CARISOPRODOL
  17. CARVEDILOL. [Concomitant]
     Active Substance: CARVEDILOL
  18. NYSTATIN. [Concomitant]
     Active Substance: NYSTATIN
  19. AMITRIPTYLIN [Concomitant]
     Active Substance: AMITRIPTYLINE
  20. ELIQUIS [Concomitant]
     Active Substance: APIXABAN
  21. LEVOTHYROXIN [Concomitant]
     Active Substance: LEVOTHYROXINE
  22. NITROFUR [Concomitant]
     Active Substance: NITROFURANTOIN
  23. LIDOCAINE. [Concomitant]
     Active Substance: LIDOCAINE
  24. LORAZEPAM. [Concomitant]
     Active Substance: LORAZEPAM
  25. LAMOTRIGINE. [Concomitant]
     Active Substance: LAMOTRIGINE

REACTIONS (2)
  - Sinusitis [None]
  - Ear infection [None]
